FAERS Safety Report 6465666-3 (Version None)
Quarter: 2009Q4

REPORT INFORMATION
  Report Type: 
  Country: None (occurrence: None)
  Receive Date: 20091201
  Receipt Date: 20081105
  Transmission Date: 20100525
  Serious: No
  Sender: FDA-Public Use
  Company Number: US-AMGEN-KDL317497

PATIENT
  Sex: Female

DRUGS (1)
  1. ENBREL [Suspect]
     Indication: RHEUMATOID ARTHRITIS

REACTIONS (8)
  - INJECTION SITE ERYTHEMA [None]
  - INJECTION SITE HAEMATOMA [None]
  - LATEX ALLERGY [None]
  - LIMB DEFORMITY [None]
  - LIP SWELLING [None]
  - PARAESTHESIA ORAL [None]
  - RHEUMATOID ARTHRITIS [None]
  - SWELLING [None]
